FAERS Safety Report 14356789 (Version 4)
Quarter: 2018Q2

REPORT INFORMATION
  Report Type: Spontaneous
  Country: GR (occurrence: GR)
  Receive Date: 20180105
  Receipt Date: 20180412
  Transmission Date: 20180711
  Serious: Yes (Other)
  Sender: FDA-Public Use
  Company Number: GR-SA-2017SA266588

PATIENT
  Age: 66 Year
  Sex: Female

DRUGS (10)
  1. FLUDARABINE PHOSPHATE. [Suspect]
     Active Substance: FLUDARABINE PHOSPHATE
     Indication: CHRONIC LYMPHOCYTIC LEUKAEMIA
     Route: 065
  2. RITUXIMAB. [Suspect]
     Active Substance: RITUXIMAB
     Indication: CHRONIC LYMPHOCYTIC LEUKAEMIA
     Route: 065
  3. PENTOSTATIN. [Suspect]
     Active Substance: PENTOSTATIN
     Indication: CHRONIC LYMPHOCYTIC LEUKAEMIA
     Route: 065
  4. ELTROMBOPAG [Suspect]
     Active Substance: ELTROMBOPAG
     Indication: CHRONIC LYMPHOCYTIC LEUKAEMIA
     Route: 065
  5. ELTROMBOPAG [Suspect]
     Active Substance: ELTROMBOPAG
     Indication: PANCYTOPENIA
     Route: 065
  6. RITUXIMAB. [Suspect]
     Active Substance: RITUXIMAB
     Indication: CHRONIC LYMPHOCYTIC LEUKAEMIA
     Route: 065
  7. CYCLOPHOSPHAMIDE. [Suspect]
     Active Substance: CYCLOPHOSPHAMIDE
     Indication: CHRONIC LYMPHOCYTIC LEUKAEMIA
     Route: 065
  8. RUXOLITINIB [Suspect]
     Active Substance: RUXOLITINIB
     Indication: CHRONIC LYMPHOCYTIC LEUKAEMIA
     Dosage: UNK UNK, MONTHLY
     Route: 065
  9. ELTROMBOPAG [Suspect]
     Active Substance: ELTROMBOPAG
     Indication: THROMBOCYTOPENIA
     Route: 065
  10. ELTROMBOPAG [Suspect]
     Active Substance: ELTROMBOPAG
     Indication: ANAEMIA
     Route: 065

REACTIONS (9)
  - Lumbar vertebral fracture [Unknown]
  - Neutropenia [Not Recovered/Not Resolved]
  - Anaemia [Unknown]
  - Pancytopenia [Unknown]
  - Chronic lymphocytic leukaemia [Unknown]
  - Therapeutic response decreased [Unknown]
  - Thrombocytopenia [Not Recovered/Not Resolved]
  - Acute myeloid leukaemia [Unknown]
  - Fibrosis [Unknown]
